FAERS Safety Report 4568687-0 (Version None)
Quarter: 2005Q1

REPORT INFORMATION
  Report Type: 
  Country: None (occurrence: None)
  Receive Date: 20050202
  Receipt Date: 20050124
  Transmission Date: 20050727
  Serious: Yes (Disabling)
  Sender: FDA-Public Use
  Company Number: US-MERCK-0501USA03573

PATIENT
  Age: 79 Year
  Sex: Female

DRUGS (3)
  1. ZOCOR [Suspect]
     Indication: HYPERCHOLESTEROLAEMIA
     Route: 048
     Dates: start: 20020101, end: 20041111
  2. HYZAAR [Concomitant]
     Route: 048
  3. TOPROL-XL [Concomitant]
     Route: 065

REACTIONS (1)
  - PAIN IN EXTREMITY [None]
